FAERS Safety Report 9907368 (Version 2)
Quarter: 2014Q2

REPORT INFORMATION
  Report Type: Spontaneous
  Country: US (occurrence: US)
  Receive Date: 20140218
  Receipt Date: 20140418
  Transmission Date: 20141212
  Serious: No
  Sender: FDA-Public Use
  Company Number: US-GILEAD-2014-0094630

PATIENT
  Age: 41 Year
  Sex: Female

DRUGS (2)
  1. LETAIRIS [Suspect]
     Indication: PULMONARY ARTERIAL HYPERTENSION
     Dosage: 10 MG, UNK
     Route: 048
     Dates: start: 20110906
  2. DEPO PROVERA [Suspect]
     Indication: CONTRACEPTION
     Dosage: UNK
     Dates: start: 2013

REACTIONS (2)
  - Menorrhagia [Not Recovered/Not Resolved]
  - Contraception [Unknown]
